FAERS Safety Report 16796157 (Version 1)
Quarter: 2019Q3

REPORT INFORMATION
  Report Type: Spontaneous
  Country: US (occurrence: US)
  Receive Date: 20190719
  Receipt Date: 20190719
  Transmission Date: 20191005
  Serious: Yes (Hospitalization)
  Sender: FDA-Public Use
  Company Number: None

PATIENT
  Age: 73 Year
  Sex: Male
  Weight: 82 kg

DRUGS (4)
  1. CYTOXAN [Suspect]
     Active Substance: CYCLOPHOSPHAMIDE
  2. TOCILIZUMAB. [Suspect]
     Active Substance: TOCILIZUMAB
  3. FLUDARABINE [Suspect]
     Active Substance: FLUDARABINE PHOSPHATE
  4. YESCARTA [Suspect]
     Active Substance: AXICABTAGENE CILOLEUCEL

REACTIONS (13)
  - Neurotoxicity [None]
  - Somnolence [None]
  - Memory impairment [None]
  - Gastric ulcer [None]
  - Confusional state [None]
  - Gastrointestinal haemorrhage [None]
  - Cytomegalovirus infection [None]
  - Condition aggravated [None]
  - Pyrexia [None]
  - C-reactive protein increased [None]
  - Hypoxia [None]
  - Cytokine release syndrome [None]
  - Dysgraphia [None]

NARRATIVE: CASE EVENT DATE: 20190524
